FAERS Safety Report 25354390 (Version 1)
Quarter: 2025Q2

REPORT INFORMATION
  Report Type: Spontaneous
  Country: US (occurrence: US)
  Receive Date: 20250523
  Receipt Date: 20250523
  Transmission Date: 20250716
  Serious: Yes (Hospitalization, Other)
  Sender: VISTAPHARM
  Company Number: US-VISTAPHARM-2025-US-025438

PATIENT
  Age: 41 Year
  Sex: Male

DRUGS (1)
  1. METHADONE HYDROCHLORIDE [Suspect]
     Active Substance: METHADONE HYDROCHLORIDE
     Indication: Pain

REACTIONS (1)
  - Hyperinsulinaemic hypoglycaemia [Recovered/Resolved]
